FAERS Safety Report 9306137 (Version 1)
Quarter: 2013Q2

REPORT INFORMATION
  Report Type: Spontaneous
  Country: US (occurrence: None)
  Receive Date: 20130515
  Receipt Date: 20130515
  Transmission Date: 20140414
  Serious: Yes (Other)
  Sender: FDA-Public Use
  Company Number: 2013PROUSA02794

PATIENT
  Age: 82 Year
  Sex: Male

DRUGS (8)
  1. PROVENGE (SIPULEUCEL-T) SUSPENSION [Suspect]
     Indication: PROSTATE CANCER METASTATIC
     Route: 042
     Dates: start: 20130502, end: 20130502
  2. PROZAC (FLUOXETINE HYDROCHLORIDE) CAPSULE [Concomitant]
  3. TRIPTORELIN (TRIPTORELIN) [Concomitant]
  4. LISINOPRIL (LISINOPRIL) TABLET [Concomitant]
  5. NORVASC (AMLODIPINE BESILATE) TABLET [Concomitant]
  6. ASPIRIN (ACETYLSALICYLIC ACID) TABLET [Concomitant]
  7. PLAVIX (CLOPIDOGREL BISULFATE) TABLET [Concomitant]
  8. ZOCOR (SIMVASTATIN) TABLET [Concomitant]

REACTIONS (6)
  - Syncope [None]
  - Anaemia [None]
  - Dizziness [None]
  - Loss of consciousness [None]
  - Electrocardiogram QT prolonged [None]
  - Orthostatic hypotension [None]
